FAERS Safety Report 22308236 (Version 1)
Quarter: 2023Q2

REPORT INFORMATION
  Report Type: Spontaneous
  Country: US (occurrence: None)
  Receive Date: 20230511
  Receipt Date: 20230511
  Transmission Date: 20230721
  Serious: No
  Sender: FDA-Public Use
  Company Number: US-ROCHE-3212341

PATIENT
  Sex: Female
  Weight: 51.756 kg

DRUGS (8)
  1. OCREVUS [Suspect]
     Active Substance: OCRELIZUMAB
     Indication: Relapsing multiple sclerosis
     Route: 042
     Dates: start: 2018
  2. OCREVUS [Suspect]
     Active Substance: OCRELIZUMAB
     Indication: Progressive multiple sclerosis
  3. IRBESARTAN [Concomitant]
     Active Substance: IRBESARTAN
  4. DILTIAZEM [Concomitant]
     Active Substance: DILTIAZEM
  5. SIMVASTATIN [Concomitant]
     Active Substance: SIMVASTATIN
  6. TORSEMIDE [Concomitant]
     Active Substance: TORSEMIDE
  7. PREDNISONE [Concomitant]
     Active Substance: PREDNISONE
     Dosage: 10 MG ALTERNATING 5 MG DAILY
  8. CARBAMAZEPINE [Concomitant]
     Active Substance: CARBAMAZEPINE

REACTIONS (2)
  - Pruritus [Not Recovered/Not Resolved]
  - Rash [Not Recovered/Not Resolved]
